FAERS Safety Report 4407441-7 (Version None)
Quarter: 2004Q3

REPORT INFORMATION
  Report Type: 
  Country: None (occurrence: None)
  Receive Date: 20040721
  Receipt Date: 20040705
  Transmission Date: 20050211
  Serious: Yes (Hospitalization, Other)
  Sender: FDA-Public Use
  Company Number: JP_030701359

PATIENT
  Age: 60 Year
  Sex: Male
  Weight: 45 kg

DRUGS (7)
  1. VANCOMYCIN [Suspect]
     Indication: STAPHYLOCOCCAL INFECTION
     Dosage: 500 MG/2 DAY
     Dates: start: 20020701, end: 20020726
  2. VOLTAREN [Concomitant]
  3. SELBEX (TEPRENONE) [Concomitant]
  4. NITOROL - SLOW RELEASE (ISOSORBIDE DINITRATE) [Concomitant]
  5. MAGNESIUM OXIDE [Concomitant]
  6. LOXONIN (LOXOPROFEN SODIUM) [Concomitant]
  7. BUPRENORPHINE HYDROCHLORIDE [Concomitant]

REACTIONS (10)
  - BLOOD DISORDER [None]
  - CONDITION AGGRAVATED [None]
  - DISEASE RECURRENCE [None]
  - DRUG LEVEL FLUCTUATING [None]
  - HYPERSENSITIVITY [None]
  - LEG AMPUTATION [None]
  - LYMPHOCYTE STIMULATION TEST POSITIVE [None]
  - OSTEOMYELITIS [None]
  - PANCYTOPENIA [None]
  - RENAL IMPAIRMENT [None]
